FAERS Safety Report 12974754 (Version 3)
Quarter: 2017Q2

REPORT INFORMATION
  Report Type: Report from Study
  Country: JP (occurrence: JP)
  Receive Date: 20161125
  Receipt Date: 20170610
  Transmission Date: 20170830
  Serious: Yes (Other)
  Sender: FDA-Public Use
  Company Number: JP-AMGEN-JPNCT2016167141

PATIENT
  Age: 86 Year
  Sex: Male
  Weight: 64 kg

DRUGS (33)
  1. DARBEPOETIN ALFA [Suspect]
     Active Substance: DARBEPOETIN ALFA
     Indication: MYELODYSPLASTIC SYNDROME
     Dosage: 240 MUG, Q2WK
     Route: 058
     Dates: start: 20150609
  2. PREDONINE [Concomitant]
     Active Substance: PREDNISOLONE
     Indication: POLYMYALGIA RHEUMATICA
     Dosage: 10 TO 25.5 MG, UNK
     Route: 048
     Dates: start: 20150527, end: 20160327
  3. PREDONINE [Concomitant]
     Active Substance: PREDNISOLONE
     Dosage: 25.5 MG, UNK
     Route: 048
     Dates: start: 20150820, end: 20150828
  4. PRIMOBOLAN-DEPOT [Concomitant]
     Active Substance: METHENOLONE ENANTHATE
     Indication: MYELODYSPLASTIC SYNDROME
     Dosage: 15 MG, UNK
     Route: 048
     Dates: start: 20150625, end: 20160513
  5. CIBENOL [Concomitant]
     Active Substance: CIFENLINE
     Dosage: 200 MG, UNK
     Route: 048
     Dates: start: 20150617, end: 20151208
  6. DARBEPOETIN ALFA [Suspect]
     Active Substance: DARBEPOETIN ALFA
     Dosage: 240 MUG, Q4WK
     Route: 058
     Dates: start: 20150820
  7. DARBEPOETIN ALFA [Suspect]
     Active Substance: DARBEPOETIN ALFA
     Dosage: 240 MUG, Q3WK
     Route: 058
     Dates: start: 20160407
  8. DARBEPOETIN ALFA [Suspect]
     Active Substance: DARBEPOETIN ALFA
     Dosage: 120 MUG, QD
     Route: 058
     Dates: start: 20160509
  9. ELIQUIS [Suspect]
     Active Substance: APIXABAN
     Dosage: 5 MG, UNK
     Route: 048
     Dates: start: 20160309, end: 20160513
  10. CARVEDILOL. [Concomitant]
     Active Substance: CARVEDILOL
     Dosage: 10 MG, UNK
     Route: 048
     Dates: start: 20150617, end: 20151208
  11. NIVADIL [Concomitant]
     Active Substance: NILVADIPINE
     Indication: HYPERTENSION
     Dosage: 8 TO 16 MG, UNK
     Route: 048
     Dates: start: 20150617, end: 20160513
  12. CIBENOL [Concomitant]
     Active Substance: CIFENLINE
     Indication: ATRIAL FIBRILLATION
     Dosage: 200 TO 400 MG, UNK
     Route: 048
     Dates: start: 20150617, end: 20160513
  13. CIBENOL [Concomitant]
     Active Substance: CIFENLINE
     Dosage: 400 MG, UNK
     Route: 048
     Dates: start: 20151209, end: 20160513
  14. DARBEPOETIN ALFA [Suspect]
     Active Substance: DARBEPOETIN ALFA
     Dosage: 240 MUG, Q3WK
     Route: 058
     Dates: start: 20151120
  15. ALFACALCIDOL [Concomitant]
     Active Substance: ALFACALCIDOL
     Dosage: 0.25 MUG, UNK
     Route: 048
     Dates: start: 20151228, end: 20160427
  16. PREDONINE [Concomitant]
     Active Substance: PREDNISOLONE
     Dosage: 15 MG, UNK
     Route: 048
     Dates: start: 20150701, end: 20150819
  17. CARVEDILOL. [Concomitant]
     Active Substance: CARVEDILOL
     Indication: CARDIAC FAILURE CHRONIC
     Dosage: 10 TO 20 MG, UNK
     Route: 048
     Dates: start: 20150617, end: 20160513
  18. DARBEPOETIN ALFA [Suspect]
     Active Substance: DARBEPOETIN ALFA
     Dosage: 240 MUG, QD
     Route: 058
     Dates: start: 20150803
  19. SODIUM RABEPRAZOLE [Concomitant]
     Active Substance: RABEPRAZOLE SODIUM
     Dosage: 10 MG, UNK
     Route: 048
     Dates: start: 20150716, end: 20160505
  20. DARBEPOETIN ALFA [Suspect]
     Active Substance: DARBEPOETIN ALFA
     Dosage: 240 MUG, Q4WK
     Route: 058
     Dates: start: 20151014
  21. DARBEPOETIN ALFA [Suspect]
     Active Substance: DARBEPOETIN ALFA
     Dosage: 240 MUG, Q4WK
     Route: 058
     Dates: start: 20151217
  22. DARBEPOETIN ALFA [Suspect]
     Active Substance: DARBEPOETIN ALFA
     Dosage: 240 MUG, Q2WK
     Route: 058
     Dates: start: 20150925
  23. PREDONINE [Concomitant]
     Active Substance: PREDNISOLONE
     Dosage: 15 MG, UNK
     Route: 048
     Dates: start: 20150527, end: 20150611
  24. PREDONINE [Concomitant]
     Active Substance: PREDNISOLONE
     Dosage: 10 MG, UNK
     Route: 048
     Dates: start: 20150829, end: 20160327
  25. CARVEDILOL. [Concomitant]
     Active Substance: CARVEDILOL
     Dosage: 20 MG, UNK
     Route: 048
     Dates: start: 20151209, end: 20160513
  26. FUROSEMIDE. [Concomitant]
     Active Substance: FUROSEMIDE
     Indication: CARDIAC FAILURE
     Dosage: 10 MG, UNK
     Route: 048
     Dates: start: 20150701, end: 20160406
  27. DARBEPOETIN ALFA [Suspect]
     Active Substance: DARBEPOETIN ALFA
     Dosage: 240 MUG, QD
     Route: 058
     Dates: start: 20150716
  28. DARBEPOETIN ALFA [Suspect]
     Active Substance: DARBEPOETIN ALFA
     Dosage: 240 MUG, Q4WK
     Route: 058
     Dates: start: 20160218
  29. ELIQUIS [Suspect]
     Active Substance: APIXABAN
     Indication: PRODUCT USED FOR UNKNOWN INDICATION
     Dosage: 5 MG, UNK
     Route: 048
     Dates: start: 20150916, end: 20160513
  30. ELIQUIS [Suspect]
     Active Substance: APIXABAN
     Dosage: 5 MG, UNK
     Route: 048
     Dates: start: 20150916, end: 20160203
  31. PREDONINE [Concomitant]
     Active Substance: PREDNISOLONE
     Dosage: 10 MG, UNK
     Route: 048
     Dates: start: 20150612, end: 20150622
  32. NIVADIL [Concomitant]
     Active Substance: NILVADIPINE
     Dosage: 8 MG, UNK
     Route: 048
     Dates: start: 20150617, end: 20151208
  33. NIVADIL [Concomitant]
     Active Substance: NILVADIPINE
     Dosage: 16 MG, UNK
     Route: 048
     Dates: start: 20151209, end: 20160513

REACTIONS (3)
  - Acute kidney injury [Not Recovered/Not Resolved]
  - Urinary tract infection [Recovering/Resolving]
  - Interstitial lung disease [Recovering/Resolving]

NARRATIVE: CASE EVENT DATE: 20160201
